FAERS Safety Report 15833175 (Version 2)
Quarter: 2019Q1

REPORT INFORMATION
  Report Type: Spontaneous
  Country: SE (occurrence: SE)
  Receive Date: 20190116
  Receipt Date: 20190315
  Transmission Date: 20190417
  Serious: Yes (Hospitalization, Other)
  Sender: FDA-Public Use
  Company Number: SE-TEVA-2019-SE-998683

PATIENT
  Age: 22 Year
  Sex: Female

DRUGS (4)
  1. NAPROXEN. [Suspect]
     Active Substance: NAPROXEN
     Dosage: UNKNOWN AMOUNT OF
     Route: 065
     Dates: start: 20160511, end: 20160511
  2. PANODIL [Suspect]
     Active Substance: ACETAMINOPHEN
     Route: 065
     Dates: start: 20160511, end: 20160511
  3. ATORVASTATIN [Concomitant]
     Active Substance: ATORVASTATIN
  4. SERTRALINE [Suspect]
     Active Substance: SERTRALINE HYDROCHLORIDE
     Dates: start: 20160511, end: 20160511

REACTIONS (2)
  - Toxicity to various agents [Unknown]
  - Suicidal ideation [Unknown]

NARRATIVE: CASE EVENT DATE: 20160511
